FAERS Safety Report 4709747-0 (Version None)
Quarter: 2005Q3

REPORT INFORMATION
  Report Type: 
  Country: None (occurrence: None)
  Receive Date: 20050707
  Receipt Date: 20050622
  Transmission Date: 20060218
  Serious: Yes (Hospitalization, Other)
  Sender: FDA-Public Use
  Company Number: USA0506101111

PATIENT
  Age: 63 Year
  Sex: Male

DRUGS (2)
  1. HUMULIN R [Suspect]
     Indication: BLOOD GLUCOSE INCREASED
     Dosage: 70 U/1 DAY
     Dates: start: 19820101
  2. HUMULIN N [Suspect]
     Indication: BLOOD GLUCOSE INCREASED
     Dosage: 90 U/1 DAY
     Dates: start: 19820101

REACTIONS (10)
  - ABASIA [None]
  - AMNESIA [None]
  - BACK PAIN [None]
  - BLOOD GLUCOSE DECREASED [None]
  - BLOOD GLUCOSE INCREASED [None]
  - CORONARY ARTERY OCCLUSION [None]
  - HALLUCINATION [None]
  - LOSS OF CONSCIOUSNESS [None]
  - MYOCARDIAL INFARCTION [None]
  - PAIN IN EXTREMITY [None]
